FAERS Safety Report 9547528 (Version 2)
Quarter: 2014Q2

REPORT INFORMATION
  Report Type: Spontaneous
  Country: JP (occurrence: JP)
  Receive Date: 20130924
  Receipt Date: 20140416
  Transmission Date: 20141212
  Serious: Yes (Hospitalization, Other)
  Sender: FDA-Public Use
  Company Number: JP-ALEXION PHARMACEUTICALS INC.-A201302285

PATIENT
  Sex: 0

DRUGS (5)
  1. SOLIRIS 300MG [Suspect]
     Indication: PAROXYSMAL NOCTURNAL HAEMOGLOBINURIA
     Dosage: 600 MG, QW
     Route: 042
     Dates: start: 20130806, end: 20130827
  2. SOLIRIS 300MG [Suspect]
     Dosage: 900 MG, Q2W
     Route: 042
     Dates: start: 20130903, end: 20130903
  3. PREDNISOLONE [Concomitant]
     Indication: PRODUCT USED FOR UNKNOWN INDICATION
     Dosage: 40 MG, QD
     Route: 048
     Dates: start: 20130503, end: 20130715
  4. PREDNISOLONE [Concomitant]
     Dosage: 50 MG, QD
     Route: 048
     Dates: start: 20130715, end: 20130926
  5. PREDNISOLONE [Concomitant]
     Dosage: 15 MG, QD
     Route: 048
     Dates: start: 20130926

REACTIONS (3)
  - Agranulocytosis [Recovered/Resolved]
  - Neutropenia [Unknown]
  - Haemoglobin decreased [Unknown]
